FAERS Safety Report 4954460-8 (Version None)
Quarter: 2006Q1

REPORT INFORMATION
  Report Type: 
  Country: None (occurrence: None)
  Receive Date: 20060322
  Receipt Date: 20060307
  Transmission Date: 20060701
  Serious: Yes (Hospitalization, Other)
  Sender: FDA-Public Use
  Company Number: 2004BL005284

PATIENT
  Age: 25 Year
  Sex: Female

DRUGS (2)
  1. FLUOCINOLONE ACETONIDE INTRAVITREAL IMPLANT (MASKED) (FLUOCINOLONE ACE [Suspect]
     Indication: UVEITIS
     Dosage: LEFT EYE
     Dates: start: 20020625, end: 20050106
  2. PREDNISOLONE [Concomitant]

REACTIONS (7)
  - CORNEAL DECOMPENSATION [None]
  - CORNEAL EROSION [None]
  - CORNEAL OEDEMA [None]
  - CYTOMEGALOVIRUS INFECTION [None]
  - INTRAOCULAR PRESSURE DECREASED [None]
  - INTRAOCULAR PRESSURE INCREASED [None]
  - UVEITIS [None]
